APPROVED DRUG PRODUCT: PHENTOLAMINE MESYLATE
Active Ingredient: PHENTOLAMINE MESYLATE
Strength: 5MG/VIAL
Dosage Form/Route: INJECTABLE;INJECTION
Application: A207686 | Product #001 | TE Code: AP
Applicant: PRECISION DOSE INC
Approved: Jul 14, 2017 | RLD: No | RS: No | Type: RX